FAERS Safety Report 7880176-4 (Version None)
Quarter: 2011Q4

REPORT INFORMATION
  Report Type: 
  Country: None (occurrence: None)
  Receive Date: 20111101
  Receipt Date: 20100827
  Transmission Date: 20120403
  Serious: No
  Sender: FDA-Public Use
  Company Number: US-BAYER-201031971NA

PATIENT
  Sex: Female

DRUGS (2)
  1. TYLENOL REGULAR [Concomitant]
     Indication: SINUS DISORDER
  2. AVELOX [Suspect]
     Dosage: 400 MG, QD
     Route: 048
     Dates: start: 20100823

REACTIONS (1)
  - INSOMNIA [None]
